FAERS Safety Report 9202302 (Version 2)
Quarter: 2013Q2

REPORT INFORMATION
  Report Type: Spontaneous
  Country: US (occurrence: US)
  Receive Date: 20130401
  Receipt Date: 20130401
  Transmission Date: 20140414
  Serious: Yes (Other)
  Sender: FDA-Public Use
  Company Number: PHEH2012US022338

PATIENT
  Sex: Female

DRUGS (2)
  1. DIOVAN [Suspect]
     Dosage: UNK UKN, QD
     Dates: start: 1980
  2. LOSARTAN+HYDROCHLOROTHIAZIDE [Suspect]
     Dosage: (50/12.5 MG)
     Dates: start: 201112

REACTIONS (3)
  - Hypertension [Unknown]
  - Haematochezia [Unknown]
  - Product quality issue [None]
